FAERS Safety Report 8363798-6 (Version None)
Quarter: 2012Q1

REPORT INFORMATION
  Report Type: 
  Country: None (occurrence: None)
  Receive Date: 20120323
  Receipt Date: 20111219
  Transmission Date: 20120608
  Serious: Yes (Other)
  Sender: FDA-Public Use
  Company Number: 163-21880-11113305

PATIENT
  Age: 89 Year
  Sex: Female

DRUGS (11)
  1. KLOR-CON [Concomitant]
  2. SYNTHROID [Concomitant]
  3. SIMVASTATIN [Concomitant]
  4. LUMIGAN [Concomitant]
  5. REVLIMID [Suspect]
     Indication: MYELODYSPLASTIC SYNDROME
     Dosage: 10 MG, 1 IN 1 D, PO
     Route: 048
     Dates: start: 20110901
  6. CO Q10 (UBIDECARENONE) [Concomitant]
  7. AMLODIPINE [Concomitant]
  8. PRO-AIR (PROCATEROL HYDROCHLORIDE) [Concomitant]
  9. NEXIUM [Concomitant]
  10. HYDROCHLOROTHIAZIDE [Concomitant]
  11. VITAMIN-MINERAL COMPOUND TAB [Concomitant]

REACTIONS (1)
  - HALLUCINATION [None]
